FAERS Safety Report 8418939-9 (Version None)
Quarter: 2012Q2

REPORT INFORMATION
  Report Type: 
  Country: None (occurrence: None)
  Receive Date: 20120607
  Receipt Date: 20120530
  Transmission Date: 20120825
  Serious: Yes (Disabling)
  Sender: FDA-Public Use
  Company Number: PHHY2012FR047037

PATIENT
  Sex: Male

DRUGS (2)
  1. GLEEVEC [Suspect]
     Indication: GASTROINTESTINAL STROMAL TUMOUR
     Dosage: 400 MG, DAILY
     Route: 048
     Dates: start: 20090903, end: 20110427
  2. GLEEVEC [Suspect]
     Dosage: 300 MG, DAILY
     Route: 048
     Dates: start: 20110428

REACTIONS (13)
  - OEDEMA [None]
  - TOOTH FRACTURE [None]
  - ARTHRALGIA [None]
  - MUSCLE SPASMS [None]
  - ASTHENIA [None]
  - PRURITUS [None]
  - XEROSIS [None]
  - DRY SKIN [None]
  - TOOTH DISORDER [None]
  - PERIODONTITIS [None]
  - DIARRHOEA [None]
  - TOOTHACHE [None]
  - FATIGUE [None]
